FAERS Safety Report 25480406 (Version 2)
Quarter: 2025Q2

REPORT INFORMATION
  Report Type: Spontaneous
  Country: BE (occurrence: BE)
  Receive Date: 20250625
  Receipt Date: 20250630
  Transmission Date: 20250716
  Serious: Yes (Death, Life-Threatening, Other)
  Sender: PFIZER
  Company Number: BE-PFIZER INC-PV202500075620

PATIENT
  Sex: Male

DRUGS (3)
  1. METHOTREXATE [Suspect]
     Active Substance: METHOTREXATE
     Dosage: 6 DF, WEEKLY
  2. METHOTREXATE [Suspect]
     Active Substance: METHOTREXATE
     Dosage: 8 DF, WEEKLY
  3. METHOTREXATE [Suspect]
     Active Substance: METHOTREXATE
     Dosage: 6 DF, WEEKLY

REACTIONS (2)
  - Cardiac arrest [Fatal]
  - Arrhythmia [Fatal]
